FAERS Safety Report 18548426 (Version 3)
Quarter: 2021Q1

REPORT INFORMATION
  Report Type: Spontaneous
  Country: US (occurrence: US)
  Receive Date: 20201126
  Receipt Date: 20210223
  Transmission Date: 20210419
  Serious: Yes (Other)
  Sender: FDA-Public Use
  Company Number: US-PFIZER INC-2020463476

PATIENT
  Age: 49 Year
  Sex: Female
  Weight: 68.03 kg

DRUGS (12)
  1. CYMBALTA [Concomitant]
     Active Substance: DULOXETINE HYDROCHLORIDE
     Dosage: UNK
  2. AMITRIPTYLINE [Concomitant]
     Active Substance: AMITRIPTYLINE
     Dosage: UNK
  3. BIOTIN [Concomitant]
     Active Substance: BIOTIN
     Dosage: UNK
  4. CALCIUM +D3 [Concomitant]
     Active Substance: CALCIUM\CHOLECALCIFEROL
     Dosage: UNK(CALCIUM 1000 + D3 1000MG?800 TABLET)
  5. AMITRIPTYLINE HCL [Concomitant]
     Active Substance: AMITRIPTYLINE
     Dosage: UNK
  6. VITAMIN D3 [Concomitant]
     Active Substance: CHOLECALCIFEROL
     Dosage: UNK
  7. FASLODEX [Suspect]
     Active Substance: FULVESTRANT
     Indication: BREAST CANCER FEMALE
     Dosage: 250 MG/5ML SYRINGE
  8. ZOFRAN [Concomitant]
     Active Substance: ONDANSETRON HYDROCHLORIDE
     Dosage: UNK
  9. IBRANCE [Suspect]
     Active Substance: PALBOCICLIB
     Indication: BREAST CANCER FEMALE
     Dosage: 125 MG, CYCLIC (DAILY 21 DAYS OFF 28
     Route: 048
     Dates: start: 20201110
  10. SPIRONOLACTONE. [Concomitant]
     Active Substance: SPIRONOLACTONE
     Dosage: UNK
  11. IBRANCE [Suspect]
     Active Substance: PALBOCICLIB
     Dosage: 125 MG, CYCLIC (DAILY 21 DAYS, 7 DAYS OFF)
     Dates: start: 20201110
  12. MELOXICAM. [Concomitant]
     Active Substance: MELOXICAM
     Indication: BREAST CANCER FEMALE
     Dosage: UNK

REACTIONS (17)
  - Pain in extremity [Unknown]
  - Blister [Recovering/Resolving]
  - Chills [Recovering/Resolving]
  - Rash [Recovering/Resolving]
  - Appetite disorder [Recovering/Resolving]
  - Urine abnormality [Recovering/Resolving]
  - Kidney infection [Recovering/Resolving]
  - Arthralgia [Unknown]
  - Headache [Recovering/Resolving]
  - Illness [Recovering/Resolving]
  - Muscle rupture [Unknown]
  - Oral discomfort [Unknown]
  - Eye pain [Recovering/Resolving]
  - Urinary tract infection [Recovering/Resolving]
  - Thirst [Unknown]
  - Blood count abnormal [Recovered/Resolved]
  - Body temperature increased [Recovering/Resolving]

NARRATIVE: CASE EVENT DATE: 2020
